FAERS Safety Report 8422043-3 (Version None)
Quarter: 2012Q2

REPORT INFORMATION
  Report Type: 
  Country: None (occurrence: None)
  Receive Date: 20120608
  Receipt Date: 20120604
  Transmission Date: 20120825
  Serious: Yes (Disabling)
  Sender: FDA-Public Use
  Company Number: ES-ROCHE-1063729

PATIENT
  Sex: Male

DRUGS (2)
  1. PEGASYS [Suspect]
     Indication: HEPATITIS C
     Route: 058
     Dates: start: 20110225, end: 20110907
  2. RIBAVIRIN [Suspect]
     Indication: HEPATITIS C
     Dosage: DOSAGE: 1200 UNITS NOT REPORTED
     Route: 048
     Dates: start: 20110225, end: 20110907

REACTIONS (1)
  - ERECTILE DYSFUNCTION [None]
